FAERS Safety Report 20520531 (Version 3)
Quarter: 2022Q3

REPORT INFORMATION
  Report Type: Report from Study
  Country: BR (occurrence: BR)
  Receive Date: 20220225
  Receipt Date: 20220718
  Transmission Date: 20221027
  Serious: Yes (Other)
  Sender: FDA-Public Use
  Company Number: BR-Merck Healthcare KGaA-9300646

PATIENT
  Age: 69 Year
  Sex: Male

DRUGS (2)
  1. CETUXIMAB [Suspect]
     Active Substance: CETUXIMAB
     Indication: Malignant palate neoplasm
     Dosage: UNK, WEEKLY (1/W)
     Route: 042
     Dates: start: 20211126
  2. BUDESONIDE\FORMOTEROL FUMARATE [Concomitant]
     Active Substance: BUDESONIDE\FORMOTEROL FUMARATE
     Indication: Chronic obstructive pulmonary disease
     Dosage: UNK UNK, UNKNOWN
     Route: 065

REACTIONS (2)
  - Palatal disorder [Unknown]
  - Weight decreased [Unknown]
